FAERS Safety Report 15820493 (Version 3)
Quarter: 2019Q2

REPORT INFORMATION
  Report Type: Spontaneous
  Country: US (occurrence: US)
  Receive Date: 20190114
  Receipt Date: 20190423
  Transmission Date: 20190711
  Serious: Yes (Death, Hospitalization)
  Sender: FDA-Public Use
  Company Number: US-JNJFOC-20190114183

PATIENT
  Sex: Male

DRUGS (1)
  1. HALDOL [Suspect]
     Active Substance: HALOPERIDOL
     Indication: DELIRIUM
     Route: 048
     Dates: start: 201611

REACTIONS (4)
  - Dementia [Fatal]
  - Screaming [Not Recovered/Not Resolved]
  - Restlessness [Not Recovered/Not Resolved]
  - Apallic syndrome [Not Recovered/Not Resolved]
